FAERS Safety Report 9633237 (Version 1)
Quarter: 2013Q4

REPORT INFORMATION
  Report Type: Spontaneous
  Country: US (occurrence: None)
  Receive Date: 20131018
  Receipt Date: 20131018
  Transmission Date: 20140711
  Serious: Yes (Hospitalization)
  Sender: FDA-Public Use
  Company Number: None

PATIENT
  Age: 24 Year
  Sex: Female

DRUGS (2)
  1. MIRTAZAPINE [Suspect]
     Indication: SLEEP DISORDER THERAPY
     Dosage: 1 TABLET
     Route: 048
     Dates: start: 20120608, end: 20121216
  2. ABILIFY [Suspect]
     Indication: SLEEP DISORDER THERAPY
     Dosage: 1 TABLET
     Route: 048
     Dates: start: 20120608, end: 20121216

REACTIONS (19)
  - Depression [None]
  - Akinesia [None]
  - Dystonia [None]
  - Aggression [None]
  - Memory impairment [None]
  - Thinking abnormal [None]
  - Speech disorder [None]
  - Aphasia [None]
  - Hearing impaired [None]
  - Hypogeusia [None]
  - Paraesthesia [None]
  - Visual impairment [None]
  - Parosmia [None]
  - Thought blocking [None]
  - Lethargy [None]
  - Hypersomnia [None]
  - Negativism [None]
  - Disturbance in attention [None]
  - Cognitive disorder [None]
